FAERS Safety Report 8216518-X (Version None)
Quarter: 2012Q1

REPORT INFORMATION
  Report Type: 
  Country: None (occurrence: None)
  Receive Date: 20120316
  Receipt Date: 20120312
  Transmission Date: 20120608
  Serious: Yes (Disabling)
  Sender: FDA-Public Use
  Company Number: GB-ABBOTT-12P-167-0914113-00

PATIENT
  Age: 40 Year
  Sex: Female
  Weight: 60 kg

DRUGS (2)
  1. HUMIRA [Suspect]
     Indication: ANKYLOSING SPONDYLITIS
     Dates: start: 20110101, end: 20111201
  2. HUMIRA [Suspect]
     Route: 030
     Dates: start: 20120115, end: 20120223

REACTIONS (3)
  - DEMYELINATION [None]
  - LOWER RESPIRATORY TRACT INFECTION [None]
  - OPHTHALMOPLEGIA [None]
